FAERS Safety Report 5090570-5 (Version None)
Quarter: 2006Q3

REPORT INFORMATION
  Report Type: 
  Country: None (occurrence: None)
  Receive Date: 20060828
  Receipt Date: 20060608
  Transmission Date: 20061208
  Serious: Yes (Disabling)
  Sender: FDA-Public Use
  Company Number: US-GLAXOSMITHKLINE-A0608375A

PATIENT
  Age: 33 Year
  Sex: Female

DRUGS (3)
  1. WELLBUTRIN XL [Suspect]
     Indication: DEPRESSION
     Dosage: 300MG PER DAY
     Route: 048
     Dates: start: 20060508
  2. PAXIL [Suspect]
     Indication: DEPRESSION
     Route: 048
     Dates: end: 20060526
  3. LUNESTA [Concomitant]

REACTIONS (2)
  - CONVULSION [None]
  - DIZZINESS [None]
